FAERS Safety Report 10676876 (Version 2)
Quarter: 2015Q1

REPORT INFORMATION
  Report Type: Spontaneous
  Country: IT (occurrence: IT)
  Receive Date: 20141226
  Receipt Date: 20150320
  Transmission Date: 20150720
  Serious: Yes (Hospitalization)
  Sender: FDA-Public Use
  Company Number: IT-PFIZER INC-2014355986

PATIENT
  Age: 29 Year
  Sex: Female

DRUGS (4)
  1. SEROQUEL [Suspect]
     Active Substance: QUETIAPINE FUMARATE
     Dosage: 150 MG, TOTAL
     Route: 048
     Dates: start: 20141125, end: 20141125
  2. XANAX [Suspect]
     Active Substance: ALPRAZOLAM
     Dosage: 10 MG, TOTAL
     Route: 048
     Dates: start: 20141125, end: 20141125
  3. EN [Suspect]
     Active Substance: DELORAZEPAM
     Dosage: 20 MG, TOTAL
     Route: 048
     Dates: start: 20141125, end: 20141125
  4. PASADEN [Suspect]
     Active Substance: ETIZOLAM
     Dosage: 3 MG, TOTAL
     Route: 048
     Dates: start: 20141125, end: 20141125

REACTIONS (2)
  - Drug abuse [Recovered/Resolved]
  - Sopor [Recovered/Resolved]

NARRATIVE: CASE EVENT DATE: 20141125
